FAERS Safety Report 24585161 (Version 1)
Quarter: 2024Q4

REPORT INFORMATION
  Report Type: Spontaneous
  Country: IN (occurrence: IN)
  Receive Date: 20241106
  Receipt Date: 20241106
  Transmission Date: 20250115
  Serious: Yes (Other)
  Sender: DR REDDYS
  Company Number: None

PATIENT
  Age: 59 Year
  Sex: Male

DRUGS (6)
  1. GEMCITABINE [Suspect]
     Active Substance: GEMCITABINE
     Indication: Transitional cell carcinoma
     Dosage: 1 G/M2 ON DAY 1 AND DAY 8 CYCLE REPEATING EVERY 21 DAYS
  2. GEMCITABINE [Suspect]
     Active Substance: GEMCITABINE
     Indication: Metastases to abdominal cavity
  3. GEMCITABINE [Suspect]
     Active Substance: GEMCITABINE
     Indication: Metastases to lung
  4. CISPLATIN [Suspect]
     Active Substance: CISPLATIN
     Indication: Transitional cell carcinoma
     Dosage: 75 MG/M2 EQUALLY DIVIDED INTO TWO DOSES ON DAY 1 AND DAY 2 REPEATING CYCLE EVERY 21 DAYS
  5. CISPLATIN [Suspect]
     Active Substance: CISPLATIN
     Indication: Metastases to abdominal cavity
  6. CISPLATIN [Suspect]
     Active Substance: CISPLATIN
     Indication: Metastases to lung

REACTIONS (1)
  - Acute febrile neutrophilic dermatosis [Recovered/Resolved]
